FAERS Safety Report 4730304-4 (Version None)
Quarter: 2005Q3

REPORT INFORMATION
  Report Type: 
  Country: None (occurrence: None)
  Receive Date: 20050801
  Receipt Date: 19970307
  Transmission Date: 20060218
  Serious: Yes (Life-Threatening, Hospitalization)
  Sender: FDA-Public Use
  Company Number: FR-MERCK-97016033

PATIENT
  Age: 0 Day
  Sex: Male

DRUGS (1)
  1. COZAAR [Suspect]
     Indication: MATERNAL DRUGS AFFECTING FOETUS
     Route: 065
     Dates: end: 19960701

REACTIONS (8)
  - CAESAREAN SECTION [None]
  - DRUG EXPOSURE DURING PREGNANCY [None]
  - FOETAL HEART RATE ABNORMAL [None]
  - GROWTH RETARDATION [None]
  - NEONATAL RESPIRATORY DISTRESS SYNDROME [None]
  - OLIGOHYDRAMNIOS [None]
  - PREMATURE BABY [None]
  - RESPIRATORY DISTRESS [None]
